FAERS Safety Report 15691978 (Version 1)
Quarter: 2018Q4

REPORT INFORMATION
  Report Type: Spontaneous
  Country: US (occurrence: US)
  Receive Date: 20181205
  Receipt Date: 20181205
  Transmission Date: 20190205
  Serious: No
  Sender: FDA-Public Use
  Company Number: US-009507513-1812USA000543

PATIENT
  Age: 37 Year
  Sex: Male

DRUGS (9)
  1. KEYTRUDA [Suspect]
     Active Substance: PEMBROLIZUMAB
     Indication: METASTATIC MALIGNANT MELANOMA
  2. VEMURAFENIB. [Suspect]
     Active Substance: VEMURAFENIB
     Indication: METASTATIC MALIGNANT MELANOMA
     Dosage: 960 MILLIGRAM, BID
  3. COBIMETINIB. [Suspect]
     Active Substance: COBIMETINIB
     Dosage: 40 UNK
  4. COBIMETINIB. [Suspect]
     Active Substance: COBIMETINIB
     Indication: METASTATIC MALIGNANT MELANOMA
     Dosage: 60 MILLIGRAM, QD
  5. VEMURAFENIB. [Suspect]
     Active Substance: VEMURAFENIB
     Dosage: 480 UNK
  6. COBIMETINIB. [Suspect]
     Active Substance: COBIMETINIB
     Dosage: 20 MILLIGRAM, QD
  7. VEMURAFENIB. [Suspect]
     Active Substance: VEMURAFENIB
     Dosage: 720 MILLIGRAM, BID
  8. COBIMETINIB. [Suspect]
     Active Substance: COBIMETINIB
     Dosage: 20 MILLIGRAM, QOD
  9. DECITABINE. [Suspect]
     Active Substance: DECITABINE
     Indication: METASTATIC MALIGNANT MELANOMA
     Dosage: 0.1 MILLIGRAM/KILOGRAM, BIW

REACTIONS (2)
  - Toxicity to various agents [Recovered/Resolved]
  - Hepatic enzyme increased [Recovered/Resolved]
